FAERS Safety Report 11724132 (Version 1)
Quarter: 2015Q4

REPORT INFORMATION
  Report Type: Spontaneous
  Country: US (occurrence: None)
  Receive Date: 20151111
  Receipt Date: 20151111
  Transmission Date: 20160304
  Serious: Yes (Hospitalization, Other)
  Sender: FDA-Public Use
  Company Number: US-MDT-ADR-2015-02128

PATIENT
  Age: 67 Year
  Sex: Male

DRUGS (2)
  1. LIORESAL [Suspect]
     Active Substance: BACLOFEN
     Indication: PAIN
     Dosage: 41.25MCG/DAY
  2. MORPHINE INTRATHECAL (20 MG/ML) [Suspect]
     Active Substance: MORPHINE
     Dosage: 5.5 MG/DAY

REACTIONS (4)
  - Overdose [None]
  - Unresponsive to stimuli [None]
  - Device connection issue [None]
  - Device damage [None]
